FAERS Safety Report 9853632 (Version 1)
Quarter: 2014Q1

REPORT INFORMATION
  Report Type: Spontaneous
  Country: US (occurrence: US)
  Receive Date: 20140129
  Receipt Date: 20140129
  Transmission Date: 20141002
  Serious: No
  Sender: FDA-Public Use
  Company Number: US-009507513-1401USA013450

PATIENT
  Sex: Female

DRUGS (1)
  1. IMPLANON [Suspect]
     Dosage: UNK
     Dates: start: 201008

REACTIONS (4)
  - Pain in extremity [Unknown]
  - Scar [Unknown]
  - Device difficult to use [Unknown]
  - Incorrect drug administration duration [Unknown]
